FAERS Safety Report 6393032-8 (Version None)
Quarter: 2009Q4

REPORT INFORMATION
  Report Type: 
  Country: None (occurrence: None)
  Receive Date: 20091008
  Receipt Date: 20070713
  Transmission Date: 20100525
  Serious: Yes (Other)
  Sender: FDA-Public Use
  Company Number: US-ASTRAZENECA-2006UW26714

PATIENT
  Age: 14476 Day
  Sex: Male
  Weight: 125.2 kg

DRUGS (14)
  1. SEROQUEL [Suspect]
     Indication: ANXIETY
     Dosage: 25 MG - 200 MG
     Route: 048
     Dates: start: 19991215
  2. SEROQUEL [Suspect]
     Indication: BIPOLAR DISORDER
     Dosage: 25 MG - 200 MG
     Route: 048
     Dates: start: 19991215
  3. DEPAKOTE [Concomitant]
     Dosage: 500 MG, 5 TABLETS EVERY DAY
     Dates: start: 19981025
  4. PAXIL [Concomitant]
     Dates: start: 19981025
  5. LIPITOR [Concomitant]
     Dates: start: 19991119
  6. ZYPREXA [Concomitant]
     Dates: start: 19990831
  7. KLONOPIN [Concomitant]
     Dates: start: 19990831
  8. WELLBUTRIN [Concomitant]
     Dates: start: 19990831
  9. RESTORIL [Concomitant]
     Dates: start: 19990831
  10. ZESTRIL [Concomitant]
     Dates: start: 19990831
  11. NEURONTIN [Concomitant]
     Dates: start: 20001128
  12. PROTONIX [Concomitant]
     Dates: start: 20020413
  13. LASIX [Concomitant]
     Dates: start: 20020413
  14. ASPIRIN [Concomitant]
     Dates: start: 20020413

REACTIONS (4)
  - DIABETES MELLITUS [None]
  - DIABETIC NEUROPATHY [None]
  - KETOACIDOSIS [None]
  - NEUROPATHY PERIPHERAL [None]
